FAERS Safety Report 7635932-4 (Version None)
Quarter: 2011Q3

REPORT INFORMATION
  Report Type: 
  Country: None (occurrence: None)
  Receive Date: 20110719
  Receipt Date: 20110704
  Transmission Date: 20111222
  Serious: Yes (Hospitalization, Disabling)
  Sender: FDA-Public Use
  Company Number: TCI2011A03589

PATIENT
  Age: 51 Year
  Sex: Female

DRUGS (4)
  1. ACTOS [Suspect]
     Indication: TYPE 2 DIABETES MELLITUS
     Dosage: 15 MG (15 MG, 1 D), PER ORAL
     Route: 048
     Dates: start: 20090910
  2. ANGIOTENSIN II ANTAGONISTS [Concomitant]
  3. CALCIUM CHANNEL BLOCKERS [Concomitant]
  4. SULFONAMIDES, UREA DERIVATIVES [Concomitant]

REACTIONS (3)
  - DIABETIC GANGRENE [None]
  - EXTREMITY NECROSIS [None]
  - LEG AMPUTATION [None]
